FAERS Safety Report 6537210-3 (Version None)
Quarter: 2010Q1

REPORT INFORMATION
  Report Type: 
  Country: None (occurrence: None)
  Receive Date: 20100114
  Receipt Date: 20100111
  Transmission Date: 20100710
  Serious: Yes (Life-Threatening, Hospitalization)
  Sender: FDA-Public Use
  Company Number: DE-ROCHE-672740

PATIENT
  Sex: Female
  Weight: 67 kg

DRUGS (7)
  1. CAPECITABINE [Suspect]
     Dosage: DOSE: 1650 MG/M^2/D, FREQUENCY: DAY1-14, 22-35, LAST DOSE PRIOR TO SAE 18 OCT 2009
     Route: 048
     Dates: start: 20090914, end: 20091018
  2. BEVACIZUMAB [Suspect]
     Dosage: DOSE: 5 MG/KG/D, FREQUENCY: DAY 1,15, 29, FORM: INFUSION;  LAST DOSE PRIOR TO SAE ON 12 OCT 2009.
     Route: 042
     Dates: start: 20090914, end: 20091018
  3. OXALIPLATIN [Suspect]
     Dosage: DOSE: 50 MG/M^2/D; FREQUENCY: DAY1,8,22,29; FORM: INFUSION; LAST DOSE PRIOR TO SAE:12 OCTY 2009.
     Route: 042
     Dates: start: 20090914, end: 20091018
  4. DICLOFENAC [Suspect]
     Indication: ANTIINFLAMMATORY THERAPY
     Route: 065
     Dates: start: 20080101
  5. PREDNISOLONE [Suspect]
     Indication: ANTIINFLAMMATORY THERAPY
     Route: 065
     Dates: start: 20080101
  6. OMEPRAZOL [Concomitant]
     Dates: start: 20080101
  7. CYCLOSPORINE [Concomitant]
     Dates: start: 20090101

REACTIONS (2)
  - INTESTINAL PERFORATION [None]
  - PERITONITIS [None]
